FAERS Safety Report 20305497 (Version 1)
Quarter: 2022Q1

REPORT INFORMATION
  Report Type: Spontaneous
  Country: US (occurrence: US)
  Receive Date: 20220106
  Receipt Date: 20220106
  Transmission Date: 20220423
  Serious: No
  Sender: FDA-Public Use
  Company Number: US-AMNEAL PHARMACEUTICALS-2020-AMRX-03998

PATIENT
  Age: 40 Year
  Sex: Female
  Weight: 109 kg

DRUGS (14)
  1. ACTIVELLA [Suspect]
     Active Substance: ESTRADIOL\NORETHINDRONE ACETATE
     Indication: Uterine leiomyoma
     Dosage: 1 DOSAGE FORM, 1 /DAY
     Route: 048
     Dates: start: 20190701, end: 20200602
  2. ACTIVELLA [Suspect]
     Active Substance: ESTRADIOL\NORETHINDRONE ACETATE
     Dosage: 1 DOSAGE FORM, 1 /DAY
     Route: 048
     Dates: start: 20200602, end: 20201120
  3. ELAGOLIX [Suspect]
     Active Substance: ELAGOLIX
     Indication: Uterine leiomyoma
     Dosage: 300 MILLIGRAM, 1 /DAY (MORNING DOSE)
     Route: 048
     Dates: start: 20190701, end: 20200602
  4. ELAGOLIX [Suspect]
     Active Substance: ELAGOLIX
     Dosage: 300 MILLIGRAM, 1 /DAY (PM DOSE)
     Route: 048
     Dates: start: 20190701, end: 20200602
  5. ELAGOLIX [Suspect]
     Active Substance: ELAGOLIX
     Dosage: 300 MILLIGRAM, 1 /DAY (MORNING DOSE)
     Route: 048
     Dates: start: 20200602, end: 20201120
  6. ELAGOLIX [Suspect]
     Active Substance: ELAGOLIX
     Dosage: 300 MILLIGRAM, 1 /DAY (PM DOSE)
     Route: 048
     Dates: start: 20200602, end: 20201120
  7. ADVAIR HFA [Concomitant]
     Active Substance: FLUTICASONE PROPIONATE\SALMETEROL XINAFOATE
     Indication: Asthma
     Dosage: 100 MICROGRAM, AS NEEDED
     Dates: start: 201706
  8. FERROUS SULFATE ANHYDROUS [Concomitant]
     Active Substance: FERROUS SULFATE ANHYDROUS
     Indication: Anaemia
     Dosage: 600 MILLIGRAM, 1 /DAY
     Route: 048
     Dates: start: 201802
  9. FOLIC ACID [Concomitant]
     Active Substance: FOLIC ACID
     Indication: Anaemia
     Dosage: 400 MICROGRAM, 1 /DAY
     Route: 048
     Dates: start: 20190325
  10. CALCIUM [Concomitant]
     Active Substance: CALCIUM
     Indication: Supplementation therapy
     Dosage: 500 MILLIGRAM, 1 /DAY
     Route: 048
     Dates: start: 20200316
  11. ALBUTEROL SULFATE [Concomitant]
     Active Substance: ALBUTEROL SULFATE
     Indication: Asthma
     Dosage: 90 MICROGRAM AS NEEDED
     Dates: start: 199804
  12. TYLENOL [Concomitant]
     Active Substance: ACETAMINOPHEN
     Indication: Headache
     Dosage: 500 MICROGRAM, AS NEEDED
     Route: 048
     Dates: start: 1990
  13. IBUPROFEN [Concomitant]
     Active Substance: IBUPROFEN
     Indication: Headache
     Dosage: 400 MILLIGRAM, AS NEEDED
     Route: 048
     Dates: start: 1995
  14. VITAMIN D3 [Concomitant]
     Active Substance: CHOLECALCIFEROL
     Indication: Vitamin D deficiency
     Dosage: 1000 IU 1 /DAY
     Route: 048
     Dates: start: 20170403

REACTIONS (1)
  - Bone density decreased [Not Recovered/Not Resolved]

NARRATIVE: CASE EVENT DATE: 20201116
